FAERS Safety Report 8020904-0 (Version None)
Quarter: 2011Q4

REPORT INFORMATION
  Report Type: 
  Country: None (occurrence: None)
  Receive Date: 20111229
  Receipt Date: 20111229
  Transmission Date: 20120403
  Serious: Yes (Hospitalization)
  Sender: FDA-Public Use
  Company Number: None

PATIENT
  Age: 63 Year
  Sex: Male
  Weight: 99.5 kg

DRUGS (2)
  1. PACLITAXEL [Suspect]
     Indication: NEOPLASM MALIGNANT
     Dosage: 100 MG QWEEK IV
     Route: 042
     Dates: start: 20110920, end: 20111018
  2. CARBOPLATIN [Suspect]
     Indication: NEOPLASM MALIGNANT
     Dosage: 270 MG QWEEK IV
     Route: 042
     Dates: start: 20110920, end: 20111018

REACTIONS (6)
  - DIARRHOEA [None]
  - NEUTROPENIA [None]
  - VOMITING [None]
  - DYSPHAGIA [None]
  - NAUSEA [None]
  - URINARY TRACT INFECTION [None]
